FAERS Safety Report 8611776-1 (Version None)
Quarter: 2012Q3

REPORT INFORMATION
  Report Type: 
  Country: None (occurrence: None)
  Receive Date: 20120822
  Receipt Date: 20120816
  Transmission Date: 20120928
  Serious: Yes (Other)
  Sender: FDA-Public Use
  Company Number: GB-UCBSA-063820

PATIENT
  Age: 65 Year
  Sex: Male
  Weight: 80 kg

DRUGS (3)
  1. KEPPRA [Suspect]
     Indication: EPILEPSY
     Route: 048
     Dates: start: 20100901
  2. LISINOPRIL [Concomitant]
     Route: 048
  3. AMLODIPINE [Concomitant]
     Route: 048

REACTIONS (2)
  - PRURITUS [None]
  - GENITAL INFECTION FUNGAL [None]
